FAERS Safety Report 8785514 (Version 1)
Quarter: 2012Q4

REPORT INFORMATION
  Report Type: 
  Country: US (occurrence: US)
  Receive Date: 20120914
  Receipt Date: 20120914
  Transmission Date: 20130627
  Serious: Yes (Death)
  Sender: FDA-Public Use
  Company Number: US-ASTRAZENECA-2012SE70671

PATIENT
  Age: 103 Year
  Sex: Female

DRUGS (2)
  1. NEXIUM [Suspect]
     Route: 048
     Dates: start: 20110808
  2. ATACAND [Suspect]
     Route: 048

REACTIONS (1)
  - Death [Fatal]
